FAERS Safety Report 8369047-7 (Version None)
Quarter: 2012Q2

REPORT INFORMATION
  Report Type: 
  Country: None (occurrence: None)
  Receive Date: 20120516
  Receipt Date: 20120516
  Transmission Date: 20120825
  Serious: Yes (Other)
  Sender: FDA-Public Use
  Company Number: None

PATIENT
  Age: 45 Year
  Sex: Female
  Weight: 52.6173 kg

DRUGS (1)
  1. ACETAMINOPHEN [Suspect]
     Indication: PROCEDURAL PAIN
     Dosage: 2 CAPLETS EVERY 4-6 HOURS PO
     Route: 048
     Dates: start: 20120512, end: 20120515

REACTIONS (6)
  - THROAT IRRITATION [None]
  - RASH ERYTHEMATOUS [None]
  - BURNING SENSATION [None]
  - PROCEDURAL SITE REACTION [None]
  - PAIN [None]
  - PRURITUS [None]
